FAERS Safety Report 6709451-3 (Version None)
Quarter: 2010Q2

REPORT INFORMATION
  Report Type: 
  Country: None (occurrence: None)
  Receive Date: 20100504
  Receipt Date: 20100421
  Transmission Date: 20101027
  Serious: Yes (Hospitalization, Other)
  Sender: FDA-Public Use
  Company Number: PHHY2010US24789

PATIENT

DRUGS (2)
  1. EXFORGE [Suspect]
     Dosage: UNK
  2. DIOVAN [Suspect]
     Dosage: UNK

REACTIONS (1)
  - PANCREATITIS [None]
